FAERS Safety Report 6126609-5 (Version None)
Quarter: 2009Q1

REPORT INFORMATION
  Report Type: 
  Country: None (occurrence: None)
  Receive Date: 20090320
  Receipt Date: 20090305
  Transmission Date: 20090719
  Serious: Yes (Life-Threatening)
  Sender: FDA-Public Use
  Company Number: GB-PFIZER INC-2009179957

PATIENT

DRUGS (3)
  1. SUNITINIB MALATE [Suspect]
     Indication: METASTATIC RENAL CELL CARCINOMA
     Dosage: 25 MG, 1X/DAY
     Route: 048
     Dates: start: 20060731
  2. RAMIPRIL [Concomitant]
     Dosage: UNK
     Route: 048
     Dates: start: 20080815
  3. DIAZEPAM [Concomitant]
     Dosage: UNK
     Route: 048

REACTIONS (1)
  - ABDOMINAL PAIN [None]
